FAERS Safety Report 4812095-1 (Version None)
Quarter: 2005Q4

REPORT INFORMATION
  Report Type: 
  Country: None (occurrence: None)
  Receive Date: 20051028
  Receipt Date: 20030127
  Transmission Date: 20060501
  Serious: No
  Sender: FDA-Public Use
  Company Number: US-GLAXOSMITHKLINE-A0394035A

PATIENT
  Age: 63 Year
  Sex: Male

DRUGS (13)
  1. ADVAIR DISKUS 100/50 [Suspect]
     Indication: CHRONIC OBSTRUCTIVE PULMONARY DISEASE
     Dosage: 1PUFF TWICE PER DAY
     Route: 055
     Dates: start: 20010501
  2. HYZAAR [Concomitant]
  3. FLONASE [Concomitant]
     Route: 045
  4. GUAIFENESIN [Concomitant]
  5. SYNTHROID [Concomitant]
  6. DILTIAZEM [Concomitant]
  7. ENALAPRIL [Concomitant]
  8. CELEBREX [Concomitant]
  9. LIPITOR [Concomitant]
  10. ZOLOFT [Concomitant]
  11. SONATA [Concomitant]
  12. SPIRIVA [Concomitant]
  13. ALBUTEROL [Concomitant]

REACTIONS (4)
  - CANDIDIASIS [None]
  - COUGH [None]
  - DYSGEUSIA [None]
  - ORAL CANDIDIASIS [None]
